FAERS Safety Report 18911414 (Version 2)
Quarter: 2021Q1

REPORT INFORMATION
  Report Type: Spontaneous
  Country: DE (occurrence: DE)
  Receive Date: 20210218
  Receipt Date: 20210223
  Transmission Date: 20210420
  Serious: Yes (Other)
  Sender: FDA-Public Use
  Company Number: NVSC2021DE021502

PATIENT
  Age: 29 Year
  Sex: Female

DRUGS (8)
  1. METOPROLOL. [Suspect]
     Active Substance: METOPROLOL
     Indication: TACHYCARDIA
     Dosage: UNK
     Route: 065
  2. IVABRADINE [Suspect]
     Active Substance: IVABRADINE
     Indication: SUPRAVENTRICULAR TACHYCARDIA
  3. BISOPROLOL [Suspect]
     Active Substance: BISOPROLOL
     Indication: SYNCOPE
  4. METOPROLOL. [Suspect]
     Active Substance: METOPROLOL
     Indication: SYNCOPE
  5. IVABRADINE [Suspect]
     Active Substance: IVABRADINE
     Indication: TACHYCARDIA
     Dosage: UNK
     Route: 065
  6. IVABRADINE [Suspect]
     Active Substance: IVABRADINE
     Indication: SYNCOPE
  7. BISOPROLOL [Suspect]
     Active Substance: BISOPROLOL
     Indication: TACHYCARDIA
     Dosage: UNK
     Route: 065
  8. LEVETIRACETAM. [Suspect]
     Active Substance: LEVETIRACETAM
     Indication: GENERALISED TONIC-CLONIC SEIZURE
     Dosage: UNK
     Route: 065

REACTIONS (9)
  - Off label use [Unknown]
  - Oligohydramnios [Recovered/Resolved]
  - Premature delivery [Unknown]
  - Maternal exposure during pregnancy [Unknown]
  - Vaginal haemorrhage [Recovered/Resolved]
  - First trimester pregnancy [Unknown]
  - Exposure during pregnancy [Unknown]
  - Foetal growth restriction [Unknown]
  - Contraindicated product administered [Unknown]

NARRATIVE: CASE EVENT DATE: 2019
